FAERS Safety Report 9113555 (Version 1)
Quarter: 2013Q1

REPORT INFORMATION
  Report Type: Spontaneous
  Country: IT (occurrence: IT)
  Receive Date: 20130208
  Receipt Date: 20130208
  Transmission Date: 20140127
  Serious: Yes (Hospitalization)
  Sender: FDA-Public Use
  Company Number: IT-B.I. PHARMACEUTICALS,INC./RIDGEFIELD-2013-IT-00064IT

PATIENT
  Age: 24 Year
  Sex: Male

DRUGS (5)
  1. VIRAMUNE [Suspect]
     Dosage: 400 MG
     Route: 048
     Dates: start: 20130104, end: 20130104
  2. NORVIR [Suspect]
     Dosage: 500 MG
     Route: 048
     Dates: start: 20130104, end: 20130104
  3. VIREAD [Suspect]
     Dosage: 245 MG
     Route: 048
     Dates: start: 20130104, end: 20130104
  4. ISENTRESS [Suspect]
     Dosage: 400 MG
     Route: 048
     Dates: start: 20130104, end: 20130104
  5. ALCOHOL [Suspect]

REACTIONS (2)
  - Sopor [Not Recovered/Not Resolved]
  - Intentional self-injury [Not Recovered/Not Resolved]
